FAERS Safety Report 18520243 (Version 1)
Quarter: 2020Q4

REPORT INFORMATION
  Report Type: Report from Study
  Country: US (occurrence: US)
  Receive Date: 20201118
  Receipt Date: 20201118
  Transmission Date: 20210114
  Serious: Yes (Life-Threatening, Hospitalization)
  Sender: FDA-Public Use
  Company Number: US-JNJFOC-20200107605

PATIENT
  Age: 80 Year
  Sex: Male
  Weight: 82.81 kg

DRUGS (32)
  1. ABIRATERONE ACETATE. [Suspect]
     Active Substance: ABIRATERONE ACETATE
     Indication: PROSTATE CANCER METASTATIC
     Route: 048
     Dates: start: 20160404
  2. AZELASTINE. [Concomitant]
     Active Substance: AZELASTINE HYDROCHLORIDE
     Indication: SEASONAL ALLERGY
     Dosage: 0.15 %
     Dates: start: 2015
  3. FAMOTIDINE. [Concomitant]
     Active Substance: FAMOTIDINE
     Indication: ALLERGY PROPHYLAXIS
     Route: 048
     Dates: start: 20191230, end: 20191231
  4. NICARDIPINE [Concomitant]
     Active Substance: NICARDIPINE
     Indication: ANGINA PECTORIS
     Dosage: 50-125 OTHER
     Route: 042
     Dates: start: 20191231, end: 20200101
  5. APALUTAMIDE [Suspect]
     Active Substance: APALUTAMIDE
     Indication: PROSTATE CANCER METASTATIC
     Route: 048
     Dates: start: 20160404
  6. AMLODIPINE [Concomitant]
     Active Substance: AMLODIPINE BESYLATE
     Indication: HYPERTENSION
     Route: 048
     Dates: start: 20170410
  7. LEVOTHYROXINE. [Concomitant]
     Active Substance: LEVOTHYROXINE
     Route: 048
     Dates: start: 20200102
  8. GABAPENTIN. [Concomitant]
     Active Substance: GABAPENTIN
     Route: 048
     Dates: start: 20191125
  9. VERAPAMIL [Concomitant]
     Active Substance: VERAPAMIL HYDROCHLORIDE
     Indication: ANGINA PECTORIS
     Route: 050
     Dates: start: 20191231, end: 20191231
  10. CORTISONE [Concomitant]
     Active Substance: CORTISONE
     Indication: TENDON INJURY
     Route: 030
     Dates: start: 20160826
  11. FLONASE                            /00908302/ [Concomitant]
     Active Substance: MOMETASONE FUROATE
     Indication: SEASONAL ALLERGY
     Dates: start: 20190418
  12. LEVOTHYROXINE. [Concomitant]
     Active Substance: LEVOTHYROXINE
     Indication: HYPOTHYROIDISM
     Route: 048
     Dates: start: 20191015
  13. SPIRONOLACTONE. [Concomitant]
     Active Substance: SPIRONOLACTONE
     Indication: HYPERTENSION
     Route: 048
     Dates: start: 20170710
  14. COLESTIPOL [Concomitant]
     Active Substance: COLESTIPOL
     Indication: BLOOD CHOLESTEROL INCREASED
     Route: 048
     Dates: start: 20191118
  15. NITROGLYCERIN. [Concomitant]
     Active Substance: NITROGLYCERIN
     Indication: ANGINA PECTORIS
     Dosage: 5-200 OTHER
     Route: 050
     Dates: start: 20191231, end: 20191231
  16. METOPROLOL. [Concomitant]
     Active Substance: METOPROLOL
     Indication: HYPERTENSION
     Route: 048
     Dates: start: 20170519
  17. ASPIRIN                            /00002701/ [Concomitant]
     Active Substance: ASPIRIN
     Indication: CARDIOVASCULAR EVENT PROPHYLAXIS
     Route: 048
     Dates: start: 201806
  18. CALCIUM 600+D3 [Concomitant]
     Active Substance: CALCIUM CARBONATE\VITAMIN D
     Indication: NUTRITIONAL SUPPLEMENTATION
     Dosage: 200 OTHER
     Route: 048
     Dates: start: 2014
  19. CLONAZEPAM. [Concomitant]
     Active Substance: CLONAZEPAM
     Indication: RESTLESS LEGS SYNDROME
     Route: 048
     Dates: start: 2010
  20. LACTAID [Concomitant]
     Active Substance: LACTASE
     Indication: LACTOSE INTOLERANCE
     Dosage: 3000 OTHER
     Route: 048
     Dates: start: 2000
  21. TONIC WATER [Concomitant]
     Active Substance: QUININE
     Indication: MUSCLE SPASMS
     Dosage: TONIC WATER, 8 OTHER
     Route: 048
     Dates: start: 2015
  22. LISINOPRIL. [Concomitant]
     Active Substance: LISINOPRIL
     Indication: HYPERTENSION
     Route: 048
     Dates: start: 20170710
  23. GABAPENTIN. [Concomitant]
     Active Substance: GABAPENTIN
     Indication: PERIPHERAL SENSORY NEUROPATHY
     Route: 048
     Dates: start: 20191118, end: 20191124
  24. NITROGLYCERIN. [Concomitant]
     Active Substance: NITROGLYCERIN
     Dosage: 100 OTHER
     Route: 042
     Dates: start: 20191231, end: 20200101
  25. MAGNESIUM [Concomitant]
     Active Substance: MAGNESIUM
     Dates: start: 20170710
  26. PANTOPRAZOLE [Concomitant]
     Active Substance: PANTOPRAZOLE
     Indication: GASTROOESOPHAGEAL REFLUX DISEASE
     Route: 048
     Dates: start: 2012
  27. LORATADINE. [Concomitant]
     Active Substance: LORATADINE
     Indication: SEASONAL ALLERGY
     Route: 048
     Dates: start: 20190418
  28. NICARDIPINE [Concomitant]
     Active Substance: NICARDIPINE
     Dosage: 7-20
     Route: 042
     Dates: start: 20200102, end: 20200104
  29. PREDNISONE. [Suspect]
     Active Substance: PREDNISONE
     Indication: PROSTATE CANCER METASTATIC
     Route: 048
     Dates: start: 20160404
  30. POTASSIUM CHLORIDE. [Concomitant]
     Active Substance: POTASSIUM CHLORIDE
     Indication: NUTRITIONAL SUPPLEMENTATION
     Dosage: 20
     Route: 048
     Dates: start: 20170710
  31. MUCINEX [Concomitant]
     Active Substance: GUAIFENESIN
     Indication: COUGH
     Route: 048
     Dates: start: 20190415
  32. PREDNISONE. [Concomitant]
     Active Substance: PREDNISONE
     Indication: ALLERGY PROPHYLAXIS
     Route: 048
     Dates: start: 20191230, end: 20191231

REACTIONS (1)
  - Aortic dissection [Recovered/Resolved]

NARRATIVE: CASE EVENT DATE: 20191231
